FAERS Safety Report 18776342 (Version 2)
Quarter: 2021Q1

REPORT INFORMATION
  Report Type: Report from Study
  Country: US (occurrence: US)
  Receive Date: 20210122
  Receipt Date: 20210208
  Transmission Date: 20210419
  Serious: Yes (Other)
  Sender: FDA-Public Use
  Company Number: US-JAZZ-2021-US-000756

PATIENT
  Age: 44 Year
  Sex: Female

DRUGS (4)
  1. XYREM [Suspect]
     Active Substance: SODIUM OXYBATE
     Indication: NARCOLEPSY
     Dosage: 2.25 GRAM, BID
     Route: 048
     Dates: start: 201111, end: 201111
  2. XYREM [Suspect]
     Active Substance: SODIUM OXYBATE
     Dosage: 4 GRAM, BID
     Route: 048
     Dates: start: 201504
  3. XYREM [Suspect]
     Active Substance: SODIUM OXYBATE
     Dosage: DOSE ADJUSTMENT
     Route: 048
     Dates: start: 201111, end: 201504
  4. ALCOHOL. [Concomitant]
     Active Substance: ALCOHOL

REACTIONS (4)
  - Gastrooesophageal reflux disease [Unknown]
  - Sinusitis [Unknown]
  - Headache [Recovering/Resolving]
  - Ankle operation [Unknown]

NARRATIVE: CASE EVENT DATE: 202011
